FAERS Safety Report 8293761-5 (Version None)
Quarter: 2012Q2

REPORT INFORMATION
  Report Type: 
  Country: None (occurrence: None)
  Receive Date: 20120413
  Receipt Date: 20120330
  Transmission Date: 20120825
  Serious: Yes (Other)
  Sender: FDA-Public Use
  Company Number: DSJ-2012-04200

PATIENT
  Age: 45 Year
  Sex: Male
  Weight: 82.8 kg

DRUGS (5)
  1. RASILEZ (ALISKIREN) (TABLET) (ALISKIREN) [Concomitant]
  2. BASEN OD (VOGLIBOSE) (TABLET) (VOGLIBOSE) [Concomitant]
  3. OLMESARTAN MEDOXOMIL [Suspect]
     Indication: HYPERTENSION
     Dosage: 20 MG (20 MG, 1 IN 1 D), PER ORAL
     Route: 048
     Dates: start: 20120210, end: 20120214
  4. ALLOPURINOL [Concomitant]
  5. LIVALO [Concomitant]

REACTIONS (8)
  - HEAD INJURY [None]
  - BLOOD PRESSURE INCREASED [None]
  - TRANSIENT ISCHAEMIC ATTACK [None]
  - CEREBRAL INFARCTION [None]
  - CONTUSION [None]
  - LOSS OF CONSCIOUSNESS [None]
  - FALL [None]
  - ARRHYTHMIA [None]
